FAERS Safety Report 7561283-2 (Version None)
Quarter: 2011Q2

REPORT INFORMATION
  Report Type: 
  Country: None (occurrence: None)
  Receive Date: 20110621
  Receipt Date: 20101027
  Transmission Date: 20111010
  Serious: No
  Sender: FDA-Public Use
  Company Number: US-ASTRAZENECA-2010SE51217

PATIENT
  Age: 83 Year
  Sex: Male

DRUGS (2)
  1. PULMICORT FLEXHALER [Suspect]
     Route: 055
     Dates: start: 20101017
  2. PULMICORT FLEXHALER [Suspect]
     Route: 055
     Dates: start: 20101009, end: 20101016

REACTIONS (3)
  - DYSPHONIA [None]
  - INAPPROPRIATE SCHEDULE OF DRUG ADMINISTRATION [None]
  - COUGH [None]
